FAERS Safety Report 18896392 (Version 1)
Quarter: 2021Q1

REPORT INFORMATION
  Report Type: Spontaneous
  Country: US (occurrence: US)
  Receive Date: 20210216
  Receipt Date: 20210216
  Transmission Date: 20210420
  Serious: Yes (Other)
  Sender: FDA-Public Use
  Company Number: US-COLGATE PALMOLIVE COMPANY-20210200325

PATIENT
  Sex: Male

DRUGS (1)
  1. WICKED COOL FLUORIDE TWEEN MILD MINT LMFT [Suspect]
     Active Substance: SODIUM MONOFLUOROPHOSPHATE
     Dosage: UNKNOWN DOSE

REACTIONS (1)
  - Anaphylactic reaction [Unknown]

NARRATIVE: CASE EVENT DATE: 20210204
